FAERS Safety Report 5535111-0 (Version None)
Quarter: 2007Q4

REPORT INFORMATION
  Report Type: 
  Country: None (occurrence: None)
  Receive Date: 20071203
  Receipt Date: 20071116
  Transmission Date: 20080405
  Serious: Yes (Life-Threatening, Other)
  Sender: FDA-Public Use
  Company Number: 2007AL005003

PATIENT
  Age: 19 Year
  Sex: Female

DRUGS (14)
  1. ACYCLOVIR [Suspect]
     Indication: DRUG USE FOR UNKNOWN INDICATION
  2. KETALAR [Concomitant]
  3. NORETHISTERONE [Concomitant]
  4. CYCLOSPORINE [Concomitant]
  5. CASPOFUNGIN [Concomitant]
  6. OMEPRAZOLE [Concomitant]
  7. TAZOCIN [Concomitant]
  8. VORICONAZOLE [Concomitant]
  9. PARACETAMOL [Concomitant]
  10. ONDANSETRON [Concomitant]
  11. CHLORPHENAMINE [Concomitant]
  12. ALLOPURINOL [Concomitant]
  13. MORPHINE [Concomitant]
  14. ETOPOSIDE [Concomitant]

REACTIONS (7)
  - ALANINE AMINOTRANSFERASE INCREASED [None]
  - BLOOD ALKALINE PHOSPHATASE INCREASED [None]
  - BLOOD BILIRUBIN INCREASED [None]
  - BONE MARROW TRANSPLANT [None]
  - DILATATION INTRAHEPATIC DUCT ACQUIRED [None]
  - HEPATOTOXICITY [None]
  - VENOOCCLUSIVE DISEASE [None]
